FAERS Safety Report 5522859-7 (Version None)
Quarter: 2007Q4

REPORT INFORMATION
  Report Type: 
  Country: None (occurrence: None)
  Receive Date: 20071115
  Receipt Date: 20071031
  Transmission Date: 20080405
  Serious: Yes (Hospitalization)
  Sender: FDA-Public Use
  Company Number: 163595ISR

PATIENT
  Age: 9 Year
  Sex: Male

DRUGS (27)
  1. CYCLOSPORINE [Suspect]
     Indication: STEM CELL TRANSPLANT
  2. PREDNISONE TAB [Suspect]
     Dosage: (2 MG/KG), (1.5 MG/KG), (4 MG/KG), (1 MG/KG), (2 MG/KG)
  3. ACYCLOVIR [Concomitant]
  4. FLUCONAZOLE [Concomitant]
  5. RANITIDINE HCL [Concomitant]
  6. METHYLPREDNISOLONE [Concomitant]
  7. PREDNISOLONE [Concomitant]
  8. NIFEDIPINE [Concomitant]
  9. DEXCHLORPHENIRAMINE [Concomitant]
  10. COTRIM [Concomitant]
  11. AMPICILLIN [Concomitant]
  12. GENTAMICIN [Concomitant]
  13. CEFTAZIDIME [Concomitant]
  14. VANCOMYCIN [Concomitant]
  15. MEROPENEM [Concomitant]
  16. ONDANSETRON [Concomitant]
  17. ALLOPURINOL [Concomitant]
  18. PARACETAMOL [Concomitant]
  19. CODEINE SUL TAB [Concomitant]
  20. MESNA [Concomitant]
  21. CYCLOPHOSPHAMIDE [Concomitant]
  22. LACTULOSE [Concomitant]
  23. TRIMEPRAZINE TAB [Concomitant]
  24. FUROSEMIDE [Concomitant]
  25. ZOPICLONE [Concomitant]
  26. MORPHINE [Concomitant]
  27. METHOTREXATE [Concomitant]

REACTIONS (17)
  - DEHYDRATION [None]
  - DRUG INEFFECTIVE [None]
  - DRUG LEVEL FLUCTUATING [None]
  - ENTEROCOCCAL INFECTION [None]
  - GRAFT VERSUS HOST DISEASE [None]
  - HAEMODIALYSIS [None]
  - HAEMOLYTIC URAEMIC SYNDROME [None]
  - HYPERNATRAEMIA [None]
  - HYPERTENSION [None]
  - HYPOTHERMIA [None]
  - PLATELET COUNT DECREASED [None]
  - RED BLOOD CELL SCHISTOCYTES PRESENT [None]
  - RENAL FAILURE [None]
  - SEPSIS [None]
  - TACHYCARDIA [None]
  - TOXIC EPIDERMAL NECROLYSIS [None]
  - WHITE BLOOD CELL COUNT DECREASED [None]
